FAERS Safety Report 7073119-7 (Version None)
Quarter: 2010Q4

REPORT INFORMATION
  Report Type: 
  Country: None (occurrence: None)
  Receive Date: 20101029
  Receipt Date: 20100427
  Transmission Date: 20110411
  Serious: No
  Sender: FDA-Public Use
  Company Number: A0856896A

PATIENT
  Age: 65 Year
  Sex: Female

DRUGS (3)
  1. ADVAIR DISKUS 100/50 [Suspect]
     Indication: CHRONIC OBSTRUCTIVE PULMONARY DISEASE
     Dosage: 1PUFF TWICE PER DAY
     Route: 055
     Dates: start: 20000101
  2. UNIPHYL [Concomitant]
  3. MORPHINE [Concomitant]

REACTIONS (3)
  - CANDIDIASIS [None]
  - DYSPEPSIA [None]
  - DYSPHAGIA [None]
